FAERS Safety Report 23787840 (Version 4)
Quarter: 2024Q3

REPORT INFORMATION
  Report Type: Report from Study
  Country: CA (occurrence: CA)
  Receive Date: 20240426
  Receipt Date: 20240926
  Transmission Date: 20241016
  Serious: Yes (Other)
  Sender: TAKEDA
  Company Number: CA-TAKEDA-2024TUS039432

PATIENT
  Sex: Male

DRUGS (6)
  1. VEDOLIZUMAB [Suspect]
     Active Substance: VEDOLIZUMAB
     Indication: Colitis ulcerative
     Dosage: 300 MILLIGRAM
     Route: 042
     Dates: start: 20210617
  2. VEDOLIZUMAB [Suspect]
     Active Substance: VEDOLIZUMAB
     Dosage: 300 MILLIGRAM
     Route: 042
  3. Salofalk [Concomitant]
     Dosage: UNK UNK, 3/WEEK
     Dates: start: 20210619
  4. Salofalk [Concomitant]
     Dosage: UNK UNK, BID
     Dates: start: 20210831
  5. CORTENEMA [Concomitant]
     Active Substance: HYDROCORTISONE
     Dosage: UNK UNK, 3/WEEK
     Dates: start: 20210824
  6. TOPAZOL [Concomitant]
     Dosage: 5 MILLIGRAM, QD

REACTIONS (1)
  - Lung neoplasm malignant [Recovering/Resolving]
